FAERS Safety Report 6197745-2 (Version None)
Quarter: 2009Q2

REPORT INFORMATION
  Report Type: 
  Country: None (occurrence: None)
  Receive Date: 20090521
  Receipt Date: 20090511
  Transmission Date: 20091009
  Serious: Yes (Hospitalization)
  Sender: FDA-Public Use
  Company Number: GB-ELI_LILLY_AND_COMPANY-GB200905002086

PATIENT
  Age: 19 Year
  Sex: Male

DRUGS (5)
  1. OLANZAPINE [Suspect]
     Dosage: 5 MG, UNK
  2. OLANZAPINE [Suspect]
     Dosage: 20 MG, UNK
  3. OLANZAPINE [Suspect]
     Dosage: UNK, UNKNOWN
  4. ABILIFY [Concomitant]
     Dosage: UNK, UNKNOWN
  5. ABILIFY [Concomitant]
     Dosage: 15 MG, UNK

REACTIONS (1)
  - PSYCHOTIC DISORDER [None]
